FAERS Safety Report 12658662 (Version 8)
Quarter: 2019Q3

REPORT INFORMATION
  Report Type: Spontaneous
  Country: US (occurrence: US)
  Receive Date: 20160817
  Receipt Date: 20190920
  Transmission Date: 20191004
  Serious: Yes (Hospitalization, Other)
  Sender: FDA-Public Use
  Company Number: US-BIOGEN-2005BI008835

PATIENT
  Age: 46 Year
  Sex: Female
  Weight: 85.35 kg

DRUGS (26)
  1. SKELAXIN [Concomitant]
     Active Substance: METAXALONE
     Indication: MUSCLE SPASMS
     Route: 048
     Dates: start: 2003
  2. PROMETHAZINE HCL [Concomitant]
     Active Substance: PROMETHAZINE HYDROCHLORIDE
     Indication: PRODUCT USED FOR UNKNOWN INDICATION
     Route: 048
     Dates: start: 20120301
  3. AVONEX [Suspect]
     Active Substance: INTERFERON BETA-1A
     Route: 030
     Dates: start: 20050319
  4. AVONEX [Suspect]
     Active Substance: INTERFERON BETA-1A
     Route: 030
     Dates: start: 200510
  5. AVONEX [Suspect]
     Active Substance: INTERFERON BETA-1A
     Route: 065
     Dates: end: 20160315
  6. AVONEX [Suspect]
     Active Substance: INTERFERON BETA-1A
     Route: 065
     Dates: start: 20190403
  7. VITAMIN D3 [Concomitant]
     Active Substance: CHOLECALCIFEROL
     Indication: PRODUCT USED FOR UNKNOWN INDICATION
     Route: 048
     Dates: start: 20101020
  8. AVONEX [Suspect]
     Active Substance: INTERFERON BETA-1A
     Route: 065
     Dates: start: 20050501
  9. ACIPHEX [Concomitant]
     Active Substance: RABEPRAZOLE SODIUM
     Indication: GASTROOESOPHAGEAL REFLUX DISEASE
     Route: 048
     Dates: start: 2002
  10. CYCLOBENZAPRINE HCL [Concomitant]
     Active Substance: CYCLOBENZAPRINE HYDROCHLORIDE
     Indication: PRODUCT USED FOR UNKNOWN INDICATION
     Route: 048
     Dates: start: 20120301
  11. PROVIGIL [Concomitant]
     Active Substance: MODAFINIL
     Indication: PRODUCT USED FOR UNKNOWN INDICATION
     Route: 048
  12. NEXIUM [Concomitant]
     Active Substance: ESOMEPRAZOLE MAGNESIUM
     Indication: PRODUCT USED FOR UNKNOWN INDICATION
     Route: 048
  13. ENDOCET [Concomitant]
     Active Substance: ACETAMINOPHEN\OXYCODONE HYDROCHLORIDE
     Indication: PRODUCT USED FOR UNKNOWN INDICATION
     Dosage: 7.5-325 MILLOIGRAM
     Route: 048
     Dates: start: 20120301
  14. STOOL SOFTENER (DOCUSATE) [Concomitant]
     Active Substance: DOCUSATE
     Indication: PRODUCT USED FOR UNKNOWN INDICATION
     Route: 065
  15. AVONEX [Suspect]
     Active Substance: INTERFERON BETA-1A
     Indication: RELAPSING-REMITTING MULTIPLE SCLEROSIS
     Route: 030
     Dates: start: 200502
  16. BACLOFEN. [Concomitant]
     Active Substance: BACLOFEN
     Indication: MUSCLE SPASTICITY
     Dosage: 1 TO 2
     Route: 048
     Dates: start: 2003
  17. DOCUSATE SODIUM. [Concomitant]
     Active Substance: DOCUSATE SODIUM
     Indication: PRODUCT USED FOR UNKNOWN INDICATION
     Route: 048
     Dates: start: 20120301
  18. VALIUM [Concomitant]
     Active Substance: DIAZEPAM
     Indication: PRODUCT USED FOR UNKNOWN INDICATION
     Dosage: 1 TO 2 30 MINUTES BEFORE MRI
     Route: 048
  19. AVONEX [Suspect]
     Active Substance: INTERFERON BETA-1A
     Route: 030
     Dates: start: 20120909
  20. FERROUS SULFATE. [Concomitant]
     Active Substance: FERROUS SULFATE
     Indication: IRON DEFICIENCY ANAEMIA
     Route: 065
     Dates: start: 200411
  21. SYNTHROID [Concomitant]
     Active Substance: LEVOTHYROXINE SODIUM
     Indication: PRODUCT USED FOR UNKNOWN INDICATION
     Route: 048
     Dates: start: 20120301
  22. AVONEX [Suspect]
     Active Substance: INTERFERON BETA-1A
     Route: 030
     Dates: end: 20120729
  23. PREVACID [Concomitant]
     Active Substance: LANSOPRAZOLE
     Indication: DYSPEPSIA
     Route: 065
     Dates: start: 2001
  24. COUMADIN [Concomitant]
     Active Substance: WARFARIN SODIUM
     Indication: PRODUCT USED FOR UNKNOWN INDICATION
     Route: 065
     Dates: start: 200505
  25. GABAPENTIN. [Concomitant]
     Active Substance: GABAPENTIN
     Indication: PRODUCT USED FOR UNKNOWN INDICATION
     Route: 048
     Dates: start: 20120301
  26. SIMVASTATIN. [Concomitant]
     Active Substance: SIMVASTATIN
     Indication: PRODUCT USED FOR UNKNOWN INDICATION
     Route: 048
     Dates: start: 20120301

REACTIONS (34)
  - Haematocrit decreased [Recovered/Resolved]
  - Asthenia [Recovered/Resolved]
  - Pain [Recovered/Resolved]
  - Neck pain [Recovered/Resolved]
  - Pulmonary embolism [Recovered/Resolved]
  - Hyperhidrosis [Recovered/Resolved]
  - Pruritus [Unknown]
  - Drug intolerance [Unknown]
  - Speech disorder [Recovered/Resolved]
  - Chills [Recovered/Resolved]
  - Muscle spasms [Not Recovered/Not Resolved]
  - Pyrexia [Recovered/Resolved]
  - Chest pain [Recovered/Resolved]
  - Dyspnoea [Recovered/Resolved]
  - Nausea [Recovered/Resolved]
  - Pain [Unknown]
  - Papillary thyroid cancer [Recovered/Resolved]
  - Multiple sclerosis [Unknown]
  - Influenza like illness [Recovered/Resolved]
  - Gastric haemorrhage [Unknown]
  - Gastric antral vascular ectasia [Unknown]
  - Nephropathy [Unknown]
  - Lung disorder [Not Recovered/Not Resolved]
  - Urinary tract infection [Unknown]
  - Renal impairment [Not Recovered/Not Resolved]
  - Deep vein thrombosis [Recovered/Resolved]
  - Multiple sclerosis relapse [Recovered/Resolved]
  - Headache [Not Recovered/Not Resolved]
  - Swelling [Unknown]
  - Pain in jaw [Recovered/Resolved]
  - Pancreatitis [Recovered/Resolved]
  - Blindness [Not Recovered/Not Resolved]
  - Anal incontinence [Not Recovered/Not Resolved]
  - Vomiting [Unknown]

NARRATIVE: CASE EVENT DATE: 200504
